FAERS Safety Report 5279817-X (Version None)
Quarter: 2007Q1

REPORT INFORMATION
  Report Type: 
  Country: None (occurrence: None)
  Receive Date: 20061212
  Receipt Date: 20050321
  Transmission Date: 20070707
  Serious: Yes (Other)
  Sender: FDA-Public Use
  Company Number: 2005UW04379

PATIENT
  Age: 6 Year
  Sex: Female
  Weight: 25.854 kg

DRUGS (1)
  1. RHINOCORT AQUA [Suspect]
     Indication: TONSILLAR INFLAMMATION

REACTIONS (2)
  - EYE DISORDER [None]
  - MEDICATION ERROR [None]
